FAERS Safety Report 11119664 (Version 1)
Quarter: 2015Q2

REPORT INFORMATION
  Report Type: Spontaneous
  Country: US (occurrence: US)
  Receive Date: 20150518
  Receipt Date: 20150518
  Transmission Date: 20150821
  Serious: Yes (Other)
  Sender: FDA-Public Use
  Company Number: US-GLAXOSMITHKLINE-A0972079A

PATIENT
  Age: 37 Year
  Sex: Female
  Weight: 108.96 kg

DRUGS (29)
  1. ACETYLSALICYLIC ACID [Concomitant]
     Active Substance: ASPIRIN
  2. BENLYSTA [Suspect]
     Active Substance: BELIMUMAB
     Indication: SYSTEMIC LUPUS ERYTHEMATOSUS
     Dosage: UNK UNK, CYC
     Route: 042
     Dates: start: 20120319
  3. SOLU-MEDROL [Suspect]
     Active Substance: METHYLPREDNISOLONE SODIUM SUCCINATE
     Indication: PROPHYLAXIS
     Dosage: UNK, U
     Route: 065
  4. BENADRYL [Suspect]
     Active Substance: DIPHENHYDRAMINE HYDROCHLORIDE
     Indication: PROPHYLAXIS
     Dosage: UNK, U
     Route: 065
  5. MORPHINE [Concomitant]
     Active Substance: MORPHINE
  6. REGLAN [Concomitant]
     Active Substance: METOCLOPRAMIDE HYDROCHLORIDE
  7. METHOTREXATE [Concomitant]
     Active Substance: METHOTREXATE
     Indication: SYSTEMIC LUPUS ERYTHEMATOSUS
  8. CYMBALTA [Concomitant]
     Active Substance: DULOXETINE HYDROCHLORIDE
     Indication: FIBROMYALGIA
  9. ACTONEL [Concomitant]
     Active Substance: RISEDRONATE SODIUM
  10. HYDROCHLOROTHIAZIDE. [Suspect]
     Active Substance: HYDROCHLOROTHIAZIDE
     Indication: PRODUCT USED FOR UNKNOWN INDICATION
  11. TOPAMAX [Concomitant]
     Active Substance: TOPIRAMATE
  12. LEVOTHYROXINE [Concomitant]
     Active Substance: LEVOTHYROXINE
  13. DEPAKOTE [Concomitant]
     Active Substance: DIVALPROEX SODIUM
  14. BENLYSTA [Suspect]
     Active Substance: BELIMUMAB
     Dosage: UNK
     Dates: start: 20120319
  15. PREDNISONE. [Suspect]
     Active Substance: PREDNISONE
     Indication: SYSTEMIC LUPUS ERYTHEMATOSUS
     Dosage: UNK, QD
     Dates: start: 20100101
  16. DILAUDID [Concomitant]
     Active Substance: HYDROMORPHONE HYDROCHLORIDE
  17. LASIX [Concomitant]
     Active Substance: FUROSEMIDE
  18. IMURAN [Concomitant]
     Active Substance: AZATHIOPRINE
  19. PLAQUENIL [Concomitant]
     Active Substance: HYDROXYCHLOROQUINE SULFATE
     Indication: SYSTEMIC LUPUS ERYTHEMATOSUS
  20. FOLIC ACID. [Concomitant]
     Active Substance: FOLIC ACID
  21. GABAPENTIN. [Concomitant]
     Active Substance: GABAPENTIN
  22. CLONAZEPAM. [Concomitant]
     Active Substance: CLONAZEPAM
  23. CIPRO [Concomitant]
     Active Substance: CIPROFLOXACIN HYDROCHLORIDE
  24. LINZESS [Concomitant]
     Active Substance: LINACLOTIDE
  25. PROTONIX [Concomitant]
     Active Substance: PANTOPRAZOLE SODIUM
  26. OXYCODONE [Concomitant]
     Active Substance: OXYCODONE
  27. CARISOPRODOL. [Concomitant]
     Active Substance: CARISOPRODOL
  28. LIDODERM [Concomitant]
     Active Substance: LIDOCAINE
  29. NAPROXEN. [Concomitant]
     Active Substance: NAPROXEN

REACTIONS (21)
  - Chest pain [Recovered/Resolved]
  - Palpitations [Recovered/Resolved]
  - Cataract [Not Recovered/Not Resolved]
  - Pain [Not Recovered/Not Resolved]
  - Confusional state [Not Recovered/Not Resolved]
  - Limb discomfort [Unknown]
  - Asthenia [Not Recovered/Not Resolved]
  - Hypokalaemia [Recovered/Resolved]
  - Seizure [Recovered/Resolved]
  - Paraesthesia oral [Recovered/Resolved]
  - Peripheral swelling [Not Recovered/Not Resolved]
  - Therapeutic response decreased [Not Recovered/Not Resolved]
  - Feeling hot [Unknown]
  - Pruritus generalised [Recovered/Resolved]
  - Vitamin D decreased [Not Recovered/Not Resolved]
  - Fatigue [Recovered/Resolved]
  - Hypertension [Recovered/Resolved]
  - Infusion related reaction [Unknown]
  - Butterfly rash [Unknown]
  - Headache [Recovered/Resolved]
  - Memory impairment [Not Recovered/Not Resolved]

NARRATIVE: CASE EVENT DATE: 20120319
